FAERS Safety Report 21147668 (Version 1)
Quarter: 2022Q3

REPORT INFORMATION
  Report Type: Spontaneous
  Country: US (occurrence: US)
  Receive Date: 20220729
  Receipt Date: 20220729
  Transmission Date: 20221026
  Serious: No
  Sender: FDA-Public Use
  Company Number: US-ABBVIE-22K-163-4238581-00

PATIENT
  Sex: Male
  Weight: 55.842 kg

DRUGS (10)
  1. NIASPAN [Suspect]
     Active Substance: NIACIN
     Indication: Hypercholesterolaemia
     Route: 048
     Dates: start: 2007, end: 2012
  2. NIASPAN [Suspect]
     Active Substance: NIACIN
     Dosage: DOSE INCREASED
     Route: 048
     Dates: start: 2012, end: 2013
  3. NIASPAN [Suspect]
     Active Substance: NIACIN
     Route: 048
     Dates: start: 2013
  4. NIASPAN [Suspect]
     Active Substance: NIACIN
     Route: 048
     Dates: start: 202111, end: 202111
  5. NIASPAN [Suspect]
     Active Substance: NIACIN
     Dosage: ONE 1000MG AND ONE 500MG
     Route: 048
     Dates: start: 202111
  6. COENZYME Q10 [Concomitant]
     Active Substance: DIETARY SUPPLEMENT\UBIDECARENONE
     Indication: Supplementation therapy
  7. VITAMIN K [Concomitant]
     Active Substance: PHYTONADIONE
     Indication: Supplementation therapy
  8. PFIZER-BIONTECH COVID-19 VACCINE [Concomitant]
     Active Substance: TOZINAMERAN
     Indication: COVID-19 immunisation
     Route: 030
     Dates: start: 20210130, end: 20210130
  9. PFIZER-BIONTECH COVID-19 VACCINE [Concomitant]
     Active Substance: TOZINAMERAN
     Route: 030
     Dates: start: 20210220, end: 20210220
  10. PFIZER-BIONTECH COVID-19 VACCINE [Concomitant]
     Active Substance: TOZINAMERAN
     Dosage: BOOSTER
     Route: 030
     Dates: start: 20211014, end: 20211014

REACTIONS (3)
  - Inappropriate schedule of product administration [Not Recovered/Not Resolved]
  - Low density lipoprotein increased [Not Recovered/Not Resolved]
  - Hepatic enzyme decreased [Not Recovered/Not Resolved]

NARRATIVE: CASE EVENT DATE: 20120101
